FAERS Safety Report 5407124-0 (Version None)
Quarter: 2007Q3

REPORT INFORMATION
  Report Type: 
  Country: None (occurrence: None)
  Receive Date: 20070802
  Receipt Date: 20070726
  Transmission Date: 20080115
  Serious: Yes (Hospitalization, Other)
  Sender: FDA-Public Use
  Company Number: 2006SP007408

PATIENT
  Age: 52 Year
  Sex: Male

DRUGS (21)
  1. INTEGRILIN [Suspect]
     Indication: ANTIPLATELET THERAPY
     Dates: start: 20040211, end: 20040217
  2. ASPIRIN [Concomitant]
  3. CLOPIDOGREL [Concomitant]
  4. INSULIN [Concomitant]
  5. PROPOFOL [Concomitant]
  6. DIGOXIN [Concomitant]
  7. CARVEDILOL [Concomitant]
  8. ROCURONIUM BROMIDE [Concomitant]
  9. NITROGLYCERIN [Concomitant]
  10. HEPARIN [Concomitant]
  11. MULTI-VITAMIN [Concomitant]
  12. RAMIPRIL [Concomitant]
  13. SPIRONOLACTONE [Concomitant]
  14. METOCLOPRAMIDE [Concomitant]
  15. MORPHINE [Concomitant]
  16. DOBUTAMINE HCL [Concomitant]
  17. CIPROFLOXACIN [Concomitant]
  18. DOPAMINE HCL [Concomitant]
  19. IMIPENEM [Concomitant]
  20. NOREPINEPHRINE [Concomitant]
  21. MIDAZOLAM [Concomitant]

REACTIONS (3)
  - CARDIOGENIC SHOCK [None]
  - THROMBOCYTOPENIA [None]
  - VENTRICULAR TACHYCARDIA [None]
